FAERS Safety Report 12227686 (Version 2)
Quarter: 2016Q3

REPORT INFORMATION
  Report Type: Spontaneous
  Country: US (occurrence: US)
  Receive Date: 20160401
  Receipt Date: 20160930
  Transmission Date: 20161109
  Serious: Yes (Hospitalization)
  Sender: FDA-Public Use
  Company Number: US-ASTRAZENECA-2016SE31006

PATIENT
  Age: 62 Year
  Sex: Male
  Weight: 86.2 kg

DRUGS (4)
  1. VENTOLIN INH [Concomitant]
     Indication: CHRONIC OBSTRUCTIVE PULMONARY DISEASE
     Route: 055
  2. SYMBICORT [Suspect]
     Active Substance: BUDESONIDE\FORMOTEROL FUMARATE DIHYDRATE
     Indication: CHRONIC OBSTRUCTIVE PULMONARY DISEASE
     Dosage: 160/4.5 MCG TOW PUFFS, TWO TIMES A DAY
     Route: 055
     Dates: start: 2013
  3. SYMBICORT [Suspect]
     Active Substance: BUDESONIDE\FORMOTEROL FUMARATE DIHYDRATE
     Indication: CHRONIC OBSTRUCTIVE PULMONARY DISEASE
     Dosage: 160/4.5 MCG TOW PUFFS, TWO TIMES A DAY
     Route: 055
     Dates: start: 201603
  4. OXYGEN. [Concomitant]
     Active Substance: OXYGEN
     Indication: DYSPNOEA
     Dosage: 2.0L CONTINUOUSLY
     Route: 045

REACTIONS (5)
  - Dyspnoea [Unknown]
  - Adenosquamous cell lung cancer [Unknown]
  - Device malfunction [Unknown]
  - Drug dose omission [Unknown]
  - Incorrect dose administered by device [Unknown]

NARRATIVE: CASE EVENT DATE: 2015
